FAERS Safety Report 5324330-4 (Version None)
Quarter: 2007Q2

REPORT INFORMATION
  Report Type: 
  Country: None (occurrence: None)
  Receive Date: 20070509
  Receipt Date: 20070423
  Transmission Date: 20071010
  Serious: Yes (Other)
  Sender: FDA-Public Use
  Company Number: 155800ISR

PATIENT
  Age: 35 Year
  Sex: Female

DRUGS (1)
  1. METFORMIN HCL [Suspect]

REACTIONS (9)
  - DIABETES MELLITUS NON-INSULIN-DEPENDENT [None]
  - DRUG EXPOSURE DURING PREGNANCY [None]
  - FOETAL MACROSOMIA [None]
  - GESTATIONAL DIABETES [None]
  - INFERTILITY FEMALE [None]
  - INSULIN RESISTANCE [None]
  - PREGNANCY [None]
  - PREMATURE BABY [None]
  - TOOTH ABSCESS [None]
